FAERS Safety Report 8859991 (Version 2)
Quarter: 2012Q4

REPORT INFORMATION
  Report Type: 
  Country: JP (occurrence: JP)
  Receive Date: 20121025
  Receipt Date: 20121109
  Transmission Date: 20130627
  Serious: Yes (Other)
  Sender: FDA-Public Use
  Company Number: JP-PFIZER INC-2012262595

PATIENT
  Age: 64 Year
  Sex: Male

DRUGS (1)
  1. CLINDAMYCIN PHOSPHATE [Suspect]
     Dosage: 300 mg, 3x/day
     Route: 042
     Dates: start: 20121003

REACTIONS (3)
  - Convulsion [Unknown]
  - Erythema [Unknown]
  - Drug eruption [Unknown]
